FAERS Safety Report 23250066 (Version 1)
Quarter: 2023Q4

REPORT INFORMATION
  Report Type: Spontaneous
  Country: ZA (occurrence: None)
  Receive Date: 20231201
  Receipt Date: 20231201
  Transmission Date: 20240109
  Serious: Yes (Hospitalization)
  Sender: FDA-Public Use
  Company Number: 2023A269303

PATIENT
  Age: 21915 Day

DRUGS (6)
  1. BUDESONIDE\FORMOTEROL [Suspect]
     Active Substance: BUDESONIDE\FORMOTEROL
     Indication: Asthma
     Dosage: 60 DOSE 160/4.5 MCG, UNKNOWN UNKNOWN
     Route: 055
  2. SIMVASTATIN [Concomitant]
     Active Substance: SIMVASTATIN
     Indication: Blood cholesterol
     Dosage: 10.0MG UNKNOWN
  3. PENDINE [Concomitant]
     Indication: Hypertension
     Dosage: 5.0MG UNKNOWN
  4. EUTHYROX [Concomitant]
     Active Substance: LEVOTHYROXINE SODIUM
     Indication: Thyroid disorder
     Dosage: 100.0UG UNKNOWN
  5. DEFULIDE [Concomitant]
     Indication: Hypertension
     Dosage: 40.0MG UNKNOWN
  6. STOPAYNE [Concomitant]
     Indication: Pain
     Dates: end: 202311

REACTIONS (1)
  - Seizure [Unknown]

NARRATIVE: CASE EVENT DATE: 20231121
